FAERS Safety Report 11629098 (Version 2)
Quarter: 2015Q4

REPORT INFORMATION
  Report Type: Spontaneous
  Country: GB (occurrence: GB)
  Receive Date: 20151014
  Receipt Date: 20151015
  Transmission Date: 20160304
  Serious: Yes (Hospitalization, Other)
  Sender: FDA-Public Use
  Company Number: GB-SA-2015SA159545

PATIENT
  Age: 7 Year
  Sex: Male
  Weight: 21.5 kg

DRUGS (7)
  1. CALCIUM CARBONATE. [Concomitant]
     Active Substance: CALCIUM CARBONATE
  2. MIDODRINE [Concomitant]
     Active Substance: MIDODRINE
  3. VENOFER [Concomitant]
     Active Substance: IRON SUCROSE
  4. SEVELAMER CARBONATE. [Suspect]
     Active Substance: SEVELAMER CARBONATE
     Indication: RENAL FAILURE
     Route: 048
     Dates: start: 20150923, end: 20150924
  5. CEPHALEXIN. [Concomitant]
     Active Substance: CEPHALEXIN
  6. ARANESP [Concomitant]
     Active Substance: DARBEPOETIN ALFA
  7. URSODEOXYCHOLIC ACID [Concomitant]
     Active Substance: URSODIOL

REACTIONS (2)
  - Confusional state [Recovering/Resolving]
  - Hyperammonaemic encephalopathy [Recovering/Resolving]

NARRATIVE: CASE EVENT DATE: 20150925
